FAERS Safety Report 22951839 (Version 3)
Quarter: 2025Q3

REPORT INFORMATION
  Report Type: Report from Study
  Country: CA (occurrence: CA)
  Receive Date: 20230918
  Receipt Date: 20250910
  Transmission Date: 20251021
  Serious: Yes (Hospitalization, Other)
  Sender: CELLTRION
  Company Number: CA-CELLTRION INC.-2023CA017945

PATIENT

DRUGS (17)
  1. RITUXIMAB [Suspect]
     Active Substance: RITUXIMAB
     Indication: Rheumatoid arthritis
     Route: 042
  2. RITUXIMAB [Suspect]
     Active Substance: RITUXIMAB
     Route: 042
  3. RITUXIMAB [Suspect]
     Active Substance: RITUXIMAB
     Route: 042
  4. RITUXIMAB [Suspect]
     Active Substance: RITUXIMAB
     Route: 042
  5. RITUXIMAB [Suspect]
     Active Substance: RITUXIMAB
     Route: 042
  6. RITUXIMAB [Suspect]
     Active Substance: RITUXIMAB
     Route: 042
  7. RITUXIMAB [Suspect]
     Active Substance: RITUXIMAB
     Route: 042
  8. ACETAMINOPHEN [Concomitant]
     Active Substance: ACETAMINOPHEN
     Route: 048
  9. ACETAMINOPHEN [Concomitant]
     Active Substance: ACETAMINOPHEN
     Route: 048
  10. AZATHIOPRINE [Concomitant]
     Active Substance: AZATHIOPRINE
     Indication: Rheumatoid arthritis
  11. BENADRYL [Concomitant]
     Active Substance: DIPHENHYDRAMINE HYDROCHLORIDE
     Route: 048
  12. BENADRYL [Concomitant]
     Active Substance: DIPHENHYDRAMINE HYDROCHLORIDE
     Route: 048
  13. CALCIUM [Concomitant]
     Active Substance: CALCIUM
  14. DEXILANT [Concomitant]
     Active Substance: DEXLANSOPRAZOLE
     Indication: Abdominal pain upper
  15. METHYLPREDNISOLONE [Concomitant]
     Active Substance: METHYLPREDNISOLONE
     Route: 042
  16. PROLIA [Concomitant]
     Active Substance: DENOSUMAB
  17. ROSUVASTATIN CALCIUM [Concomitant]
     Active Substance: ROSUVASTATIN CALCIUM

REACTIONS (6)
  - Fall [Unknown]
  - Wrist fracture [Unknown]
  - Concussion [Unknown]
  - Arthralgia [Unknown]
  - Pneumonia [Unknown]
  - Underdose [Unknown]
